FAERS Safety Report 10818499 (Version 1)
Quarter: 2015Q1

REPORT INFORMATION
  Report Type: Spontaneous
  Country: US (occurrence: US)
  Receive Date: 20150218
  Receipt Date: 20150218
  Transmission Date: 20150721
  Serious: No
  Sender: FDA-Public Use
  Company Number: US-EISAI MEDICAL RESEARCH-E2080-00763-SPO-US

PATIENT
  Age: 9 Year
  Sex: Male

DRUGS (3)
  1. CLOBAZAM [Concomitant]
     Active Substance: CLOBAZAM
     Indication: EPILEPSY
     Dosage: UNKNOWN
     Route: 065
  2. TOPAMAX [Concomitant]
     Active Substance: TOPIRAMATE
     Indication: EPILEPSY
     Dosage: UNKNOWN
     Route: 065
  3. BANZEL [Suspect]
     Active Substance: RUFINAMIDE
     Indication: EPILEPSY
     Route: 048
     Dates: start: 2009

REACTIONS (1)
  - Anaemia [Not Recovered/Not Resolved]

NARRATIVE: CASE EVENT DATE: 201409
